FAERS Safety Report 7054637-4 (Version None)
Quarter: 2010Q4

REPORT INFORMATION
  Report Type: 
  Country: None (occurrence: None)
  Receive Date: 20101015
  Receipt Date: 20101006
  Transmission Date: 20110411
  Serious: Yes (Other)
  Sender: FDA-Public Use
  Company Number: 2010US004218

PATIENT
  Age: 30 Year
  Sex: Female
  Weight: 91 kg

DRUGS (4)
  1. PROGRAF [Suspect]
     Indication: HEART TRANSPLANT
     Dosage: 4 MG AM, 5 MG PM, UID/QD, ORAL
     Route: 048
  2. MYCOPHENOLIC ACID [Concomitant]
  3. PREDNISONE TAB [Concomitant]
  4. PRENATAL PLUS IRON (ASCORBIC ACID, CALCIUM, COLECALIFEROL, COPPER, CYA [Concomitant]

REACTIONS (3)
  - ABORTION SPONTANEOUS [None]
  - DRUG EXPOSURE DURING PREGNANCY [None]
  - MULTIPLE PREGNANCY [None]
